FAERS Safety Report 9348606 (Version 1)
Quarter: 2013Q2

REPORT INFORMATION
  Report Type: Spontaneous
  Country: TR (occurrence: TR)
  Receive Date: 20130614
  Receipt Date: 20130614
  Transmission Date: 20140414
  Serious: Yes (Hospitalization)
  Sender: FDA-Public Use
  Company Number: TR-SANOFI-AVENTIS-2013SA058668

PATIENT
  Age: 1 Day
  Sex: Male
  Weight: 2.3 kg

DRUGS (2)
  1. CLEXANE [Suspect]
     Indication: HABITUAL ABORTION
     Route: 064
     Dates: start: 201207
  2. CLEXANE [Suspect]
     Indication: HABITUAL ABORTION
     Route: 064
     Dates: start: 20121016, end: 20130206

REACTIONS (2)
  - Hypoglycaemia neonatal [Recovered/Resolved]
  - Exposure during pregnancy [Unknown]
